FAERS Safety Report 8606888 (Version 4)
Quarter: 2014Q2

REPORT INFORMATION
  Report Type: Spontaneous
  Country: US (occurrence: US)
  Receive Date: 20120611
  Receipt Date: 20140523
  Transmission Date: 20141212
  Serious: Yes (Hospitalization, Disabling, Other)
  Sender: FDA-Public Use
  Company Number: US-ASTRAZENECA-2012SE34802

PATIENT
  Age: 64 Year
  Sex: Female

DRUGS (42)
  1. NEXIUM [Suspect]
     Indication: HYPERCHLORHYDRIA
     Route: 048
  2. NEXIUM [Suspect]
     Indication: DYSPEPSIA
     Route: 048
  3. NEXIUM [Suspect]
     Indication: GASTROOESOPHAGEAL REFLUX DISEASE
     Route: 048
  4. NEXIUM [Suspect]
     Indication: HYPERCHLORHYDRIA
     Route: 048
     Dates: start: 2000
  5. NEXIUM [Suspect]
     Indication: DYSPEPSIA
     Route: 048
     Dates: start: 2000
  6. NEXIUM [Suspect]
     Indication: GASTROOESOPHAGEAL REFLUX DISEASE
     Route: 048
     Dates: start: 2000
  7. NEXIUM [Suspect]
     Indication: HYPERCHLORHYDRIA
     Route: 048
     Dates: start: 20080328
  8. NEXIUM [Suspect]
     Indication: DYSPEPSIA
     Route: 048
     Dates: start: 20080328
  9. NEXIUM [Suspect]
     Indication: GASTROOESOPHAGEAL REFLUX DISEASE
     Route: 048
     Dates: start: 20080328
  10. NEXIUM [Suspect]
     Indication: HYPERCHLORHYDRIA
     Route: 048
     Dates: start: 20121130
  11. NEXIUM [Suspect]
     Indication: DYSPEPSIA
     Route: 048
     Dates: start: 20121130
  12. NEXIUM [Suspect]
     Indication: GASTROOESOPHAGEAL REFLUX DISEASE
     Route: 048
     Dates: start: 20121130
  13. PANTOPRAZOLE [Concomitant]
     Indication: GASTROOESOPHAGEAL REFLUX DISEASE
  14. PANTOPRAZOLE [Concomitant]
     Indication: DYSPEPSIA
  15. ZANTAC [Concomitant]
  16. TUMS [Concomitant]
  17. ZOCOR [Concomitant]
     Dates: start: 20051218
  18. FLUCONAZOLE [Concomitant]
     Dates: start: 20060508
  19. HYDROCODONE ACETAMINOPHEN [Concomitant]
     Dates: start: 20070420
  20. BENAZEPRIL HCTZ [Concomitant]
     Dates: start: 20070504
  21. METOPROLOL SUCCINATE [Concomitant]
     Dates: start: 20080429
  22. LEVOTHYROXINE [Concomitant]
     Dates: start: 20080728
  23. CARVEDILOL [Concomitant]
     Dates: start: 20090211
  24. FLUOXETINE HCL [Concomitant]
     Dates: start: 20090330
  25. PHENAZOPYRIDINE [Concomitant]
     Dates: start: 20090330
  26. ATENOLOL [Concomitant]
     Dates: start: 20090503
  27. ALPRAZOLAM [Concomitant]
     Dates: start: 20090622
  28. SERTRALINE [Concomitant]
     Dates: start: 20090922
  29. DILTIAZEM [Concomitant]
     Dates: start: 20100716
  30. PRISTIQ [Concomitant]
     Dates: start: 20100902
  31. NITROGLYCERIN [Concomitant]
     Dates: start: 20101011
  32. MELOXICAM [Concomitant]
     Dates: start: 20100923
  33. PRAVASTATIN [Concomitant]
     Dates: start: 20111018
  34. PRAMIPEXOLE [Concomitant]
     Dates: start: 20110922
  35. CARISOPRODOL [Concomitant]
     Dates: start: 20110909
  36. HYDROXYZINE [Concomitant]
  37. FENOFIBRATE [Concomitant]
     Dates: start: 20121102
  38. TRILIPIX [Concomitant]
     Dates: start: 20130326
  39. DOXEPIN [Concomitant]
     Dates: start: 20130319
  40. PYRELLE HB [Concomitant]
  41. PREDNISONE [Concomitant]
     Dates: start: 20120924
  42. SIMVASTATIN [Concomitant]

REACTIONS (12)
  - Spinal fracture [Unknown]
  - Femur fracture [Unknown]
  - Arthropathy [Unknown]
  - Fall [Unknown]
  - Joint injury [Unknown]
  - Osteoporosis [Unknown]
  - Carpal tunnel syndrome [Unknown]
  - Arthritis [Unknown]
  - Glaucoma [Unknown]
  - Vitamin D deficiency [Unknown]
  - Osteopenia [Unknown]
  - Depression [Unknown]
